FAERS Safety Report 8141964-2 (Version None)
Quarter: 2012Q1

REPORT INFORMATION
  Report Type: 
  Country: None (occurrence: None)
  Receive Date: 20120216
  Receipt Date: 20120213
  Transmission Date: 20120608
  Serious: No
  Sender: FDA-Public Use
  Company Number: US-TEVA-322734USA

PATIENT
  Sex: Female
  Weight: 104.42 kg

DRUGS (2)
  1. SINGULAIR [Concomitant]
     Indication: HYPERSENSITIVITY
  2. PLAN B ONE-STEP [Suspect]
     Indication: POST COITAL CONTRACEPTION
     Dosage: 1.5 MILLIGRAM;
     Route: 048
     Dates: start: 20120209, end: 20120209

REACTIONS (6)
  - DIZZINESS [None]
  - ABDOMINAL PAIN [None]
  - MENSTRUATION IRREGULAR [None]
  - FATIGUE [None]
  - BREAST PAIN [None]
  - HEADACHE [None]
